FAERS Safety Report 5397791-2 (Version None)
Quarter: 2007Q3

REPORT INFORMATION
  Report Type: 
  Country: None (occurrence: None)
  Receive Date: 20070726
  Receipt Date: 20070720
  Transmission Date: 20080115
  Serious: Yes (Other)
  Sender: FDA-Public Use
  Company Number: DEWYE068323JUL07

PATIENT

DRUGS (2)
  1. TREVILOR [Suspect]
     Dosage: 150 MG DAILY
     Route: 048
  2. TREVILOR [Suspect]
     Dosage: 300 MG DAILY
     Route: 048

REACTIONS (1)
  - ATRIOVENTRICULAR BLOCK [None]
